FAERS Safety Report 16119944 (Version 2)
Quarter: 2019Q1

REPORT INFORMATION
  Report Type: Spontaneous
  Country: US (occurrence: US)
  Receive Date: 20190326
  Receipt Date: 20190330
  Transmission Date: 20190418
  Serious: Yes (Hospitalization, Other)
  Sender: FDA-Public Use
  Company Number: US-ABBVIE-19K-163-2711660-00

PATIENT
  Age: 28 Year
  Sex: Female
  Weight: 90.8 kg

DRUGS (4)
  1. HUMIRA [Suspect]
     Active Substance: ADALIMUMAB
     Indication: COLITIS ULCERATIVE
     Route: 058
     Dates: start: 2013, end: 2013
  2. JUNEL [Concomitant]
     Active Substance: ETHINYL ESTRADIOL\NORETHINDRONE ACETATE
     Indication: CONTRACEPTION
  3. HUMIRA [Suspect]
     Active Substance: ADALIMUMAB
     Route: 058
     Dates: start: 2019
  4. HUMIRA [Suspect]
     Active Substance: ADALIMUMAB
     Indication: POUCHITIS
     Route: 058
     Dates: start: 2013, end: 2014

REACTIONS (14)
  - Colectomy total [Unknown]
  - Ileostomy closure [Unknown]
  - Colitis ulcerative [Recovered/Resolved]
  - Pouchitis [Not Recovered/Not Resolved]
  - Procedural pain [Recovered/Resolved]
  - White blood cell count increased [Recovered/Resolved]
  - Off label use [Not Recovered/Not Resolved]
  - Diarrhoea [Not Recovered/Not Resolved]
  - Weight decreased [Not Recovered/Not Resolved]
  - Red blood cell count decreased [Recovered/Resolved]
  - Procedural pain [Recovered/Resolved]
  - Drug ineffective [Not Recovered/Not Resolved]
  - Abdominal pain [Not Recovered/Not Resolved]
  - Device issue [Recovered/Resolved]

NARRATIVE: CASE EVENT DATE: 2014
